FAERS Safety Report 6581972-6 (Version None)
Quarter: 2010Q1

REPORT INFORMATION
  Report Type: 
  Country: None (occurrence: None)
  Receive Date: 20100215
  Receipt Date: 20100205
  Transmission Date: 20100710
  Serious: Yes (Hospitalization)
  Sender: FDA-Public Use
  Company Number: DE-ABBOTT-09P-062-0611790-00

PATIENT
  Sex: Male
  Weight: 49 kg

DRUGS (8)
  1. HUMIRA [Suspect]
     Indication: CROHN'S DISEASE
     Dates: start: 20090201, end: 20090714
  2. HUMIRA [Suspect]
     Dates: start: 20091106
  3. CORTISON [Concomitant]
     Indication: DRUG USE FOR UNKNOWN INDICATION
  4. DECORTIN [Concomitant]
     Indication: DRUG USE FOR UNKNOWN INDICATION
  5. PANTOZOL [Concomitant]
     Indication: DRUG USE FOR UNKNOWN INDICATION
  6. IDEOS [Concomitant]
     Indication: DRUG USE FOR UNKNOWN INDICATION
     Dosage: MORNING AND EVENING
  7. NORFLOXACIN [Concomitant]
     Indication: DRUG USE FOR UNKNOWN INDICATION
     Dosage: MORNING AND EVENING
     Dates: start: 20090829
  8. CYANOCOBALAMIN [Concomitant]
     Indication: DRUG USE FOR UNKNOWN INDICATION
     Route: 030

REACTIONS (7)
  - ANAEMIA [None]
  - GENERAL PHYSICAL HEALTH DETERIORATION [None]
  - INTESTINAL FISTULA [None]
  - INTESTINAL RESECTION [None]
  - OEDEMA [None]
  - SHORT-BOWEL SYNDROME [None]
  - WEIGHT DECREASED [None]
